FAERS Safety Report 20482581 (Version 1)
Quarter: 2022Q1

REPORT INFORMATION
  Report Type: Spontaneous
  Country: PL (occurrence: PL)
  Receive Date: 20220217
  Receipt Date: 20220217
  Transmission Date: 20220423
  Serious: Yes (Other)
  Sender: FDA-Public Use
  Company Number: PL-JNJFOC-20211115038

PATIENT
  Age: 70 Year
  Sex: Male

DRUGS (3)
  1. DARZALEX [Suspect]
     Active Substance: DARATUMUMAB
     Indication: Plasma cell myeloma
     Dosage: 8 ROUNDS
     Route: 065
     Dates: start: 20210424
  2. VELCADE [Suspect]
     Active Substance: BORTEZOMIB
     Indication: Plasma cell myeloma
     Dosage: 8 ROUNDS
     Route: 065
     Dates: start: 20210424
  3. DEXAMETHASONE [Suspect]
     Active Substance: DEXAMETHASONE
     Indication: Plasma cell myeloma
     Dosage: 8 ROUNDS
     Route: 065
     Dates: start: 20210424

REACTIONS (2)
  - Gastrointestinal obstruction [Unknown]
  - COVID-19 [Unknown]
